FAERS Safety Report 20709115 (Version 1)
Quarter: 2022Q2

REPORT INFORMATION
  Report Type: Report from Study
  Country: US (occurrence: US)
  Receive Date: 20220414
  Receipt Date: 20220414
  Transmission Date: 20220721
  Serious: Yes (Hospitalization, Other)
  Sender: FDA-Public Use
  Company Number: US-GILEAD-2022-0577347

PATIENT
  Age: 51 Year
  Sex: Male

DRUGS (14)
  1. AZTREONAM LYSINE [Suspect]
     Active Substance: AZTREONAM LYSINE
     Indication: Bronchiectasis
     Dosage: 75 MG, TID FOR 28 DAYS ON/28 DAYS OFF
     Route: 055
  2. EFFEXOR XR [Concomitant]
     Active Substance: VENLAFAXINE HYDROCHLORIDE
  3. AZITHROMYCIN [AZITHROMYCIN DIHYDRATE] [Concomitant]
  4. BUDESONIDE [Concomitant]
     Active Substance: BUDESONIDE
  5. IBUPROFEN [Concomitant]
     Active Substance: IBUPROFEN
  6. DEXTROAMPHETAMINE SULFATE [Concomitant]
     Active Substance: DEXTROAMPHETAMINE SULFATE
  7. URSODIOL [Concomitant]
     Active Substance: URSODIOL
  8. ALBUTEROL\IPRATROPIUM [Concomitant]
     Active Substance: ALBUTEROL\IPRATROPIUM
  9. SODIUM CHLORIDE [Concomitant]
     Active Substance: SODIUM CHLORIDE
  10. SPIRIVA [TIOTROPIUM BROMIDE] [Concomitant]
  11. MIRTAZAPINE [Concomitant]
     Active Substance: MIRTAZAPINE
  12. PULMOZYME [Concomitant]
     Active Substance: DORNASE ALFA
  13. ENBREL [Concomitant]
     Active Substance: ETANERCEPT
  14. PROAIR DIGIHALER [Concomitant]
     Active Substance: ALBUTEROL SULFATE

REACTIONS (2)
  - Infection [Unknown]
  - Off label use [Unknown]
